FAERS Safety Report 8401159 (Version 5)
Quarter: 2012Q4

REPORT INFORMATION
  Report Type: Report from Study
  Country: SK (occurrence: SK)
  Receive Date: 20120210
  Receipt Date: 20121221
  Transmission Date: 20130627
  Serious: Yes (Hospitalization, Other)
  Sender: FDA-Public Use
  Company Number: SK-UCBSA-046861

PATIENT
  Age: 76 Year
  Sex: Male
  Weight: 90 kg

DRUGS (13)
  1. NEUPRO [Suspect]
     Indication: PARKINSON^S DISEASE
     Route: 062
     Dates: start: 20110614
  2. NEUPRO [Suspect]
     Indication: PARKINSON^S DISEASE
     Route: 062
     Dates: start: 20110607, end: 20110613
  3. NEUPRO [Suspect]
     Indication: PARKINSON^S DISEASE
     Route: 062
     Dates: start: 20110531, end: 20110606
  4. NEUPRO [Suspect]
     Indication: PARKINSON^S DISEASE
     Route: 062
     Dates: start: 20110524, end: 20110530
  5. DICLOFENAC SODIUM [Suspect]
     Indication: MUSCULOSKELETAL PAIN
     Dates: start: 20110615, end: 20110617
  6. LYRICA [Concomitant]
     Indication: PAIN
     Dates: start: 20110611
  7. ISICOM [Concomitant]
     Indication: PARKINSON^S DISEASE
     Dates: start: 20110524
  8. ISICOM [Concomitant]
     Indication: PARKINSON^S DISEASE
     Dates: start: 20101008, end: 20110523
  9. ISICOM [Concomitant]
     Indication: PARKINSON^S DISEASE
     Dates: start: 20101001, end: 20101007
  10. ISICOM [Concomitant]
     Indication: PARKINSON^S DISEASE
     Dates: start: 20100924, end: 20100930
  11. ISICOM [Concomitant]
     Indication: PARKINSON^S DISEASE
     Dates: start: 20100917, end: 20100923
  12. AZILECT [Concomitant]
     Indication: PARKINSON^S DISEASE
     Dates: start: 20110524
  13. ELIGARD [Concomitant]
     Indication: PROSTATE CANCER
     Dosage: 22.5 MG SOLUTION

REACTIONS (1)
  - Brachial plexus injury [Recovering/Resolving]
